FAERS Safety Report 14022192 (Version 2)
Quarter: 2017Q4

REPORT INFORMATION
  Report Type: Spontaneous
  Country: US (occurrence: US)
  Receive Date: 20170928
  Receipt Date: 20171207
  Transmission Date: 20180321
  Serious: Yes (Hospitalization)
  Sender: FDA-Public Use
  Company Number: US-BAUSCH-BL-2017-028015

PATIENT
  Sex: Female
  Weight: 49.49 kg

DRUGS (2)
  1. ATIVAN [Suspect]
     Active Substance: LORAZEPAM
     Indication: NAUSEA
  2. ATIVAN [Suspect]
     Active Substance: LORAZEPAM
     Indication: ANXIETY
     Dosage: WHEN NECESSARY
     Route: 048
     Dates: end: 20170725

REACTIONS (1)
  - Mental status changes [Not Recovered/Not Resolved]
